FAERS Safety Report 8222209-1 (Version None)
Quarter: 2012Q1

REPORT INFORMATION
  Report Type: 
  Country: None (occurrence: None)
  Receive Date: 20120307
  Receipt Date: 20110516
  Transmission Date: 20120608
  Serious: Yes (Hospitalization)
  Sender: FDA-Public Use
  Company Number: PHHY2011US42077

PATIENT
  Age: 74 Year
  Sex: Female

DRUGS (1)
  1. AFINITOR [Suspect]
     Indication: LUNG NEOPLASM MALIGNANT
     Dosage: 5 MG, QD, ORAL
     Route: 048
     Dates: start: 20110201, end: 20110510

REACTIONS (3)
  - DEHYDRATION [None]
  - ASTHENIA [None]
  - HAEMOGLOBIN DECREASED [None]
